FAERS Safety Report 11816357 (Version 3)
Quarter: 2016Q2

REPORT INFORMATION
  Report Type: Spontaneous
  Country: US (occurrence: US)
  Receive Date: 20151209
  Receipt Date: 20160401
  Transmission Date: 20160815
  Serious: No
  Sender: FDA-Public Use
  Company Number: US-ASTRAZENECA-2015SF20835

PATIENT
  Sex: Male

DRUGS (7)
  1. ATORVASTATIN [Concomitant]
     Active Substance: ATORVASTATIN
  2. FUROSEMIDE. [Concomitant]
     Active Substance: FUROSEMIDE
  3. METOPROLOL TARTRATE. [Concomitant]
     Active Substance: METOPROLOL TARTRATE
  4. LISINOPRIL. [Suspect]
     Active Substance: LISINOPRIL
     Route: 048
  5. BRILINTA [Suspect]
     Active Substance: TICAGRELOR
     Indication: ACUTE CORONARY SYNDROME
     Route: 048
     Dates: start: 201511
  6. ASPIRIN. [Concomitant]
     Active Substance: ASPIRIN
  7. NITROSTAT [Concomitant]
     Active Substance: NITROGLYCERIN

REACTIONS (9)
  - Asthenia [Unknown]
  - Vision blurred [Recovering/Resolving]
  - Memory impairment [Unknown]
  - Malaise [Unknown]
  - Dizziness [Recovering/Resolving]
  - Nausea [Unknown]
  - Dyspnoea [Unknown]
  - Abdominal discomfort [Unknown]
  - Mental impairment [Unknown]
